FAERS Safety Report 8128843-1 (Version None)
Quarter: 2012Q1

REPORT INFORMATION
  Report Type: 
  Country: None (occurrence: None)
  Receive Date: 20120210
  Receipt Date: 20110506
  Transmission Date: 20120608
  Serious: Yes (Other)
  Sender: FDA-Public Use
  Company Number: US-BRISTOL-MYERS SQUIBB COMPANY-15642861

PATIENT
  Age: 57 Year
  Sex: Male

DRUGS (8)
  1. ACCUPRIL [Concomitant]
  2. AZATHIOPRINE [Concomitant]
  3. GLUCOPHAGE [Concomitant]
  4. COUMADIN [Concomitant]
  5. ORENCIA [Suspect]
     Indication: RHEUMATOID ARTHRITIS
     Route: 042
     Dates: start: 20081108
  6. VICTOZA [Concomitant]
  7. VASOTEC [Concomitant]
  8. ZOCOR [Concomitant]

REACTIONS (1)
  - MALIGNANT MELANOMA [None]
